FAERS Safety Report 24346798 (Version 1)
Quarter: 2024Q3

REPORT INFORMATION
  Report Type: Spontaneous
  Country: US (occurrence: US)
  Receive Date: 20240921
  Receipt Date: 20240921
  Transmission Date: 20241016
  Serious: No
  Sender: AMGEN
  Company Number: US-AMGEN-USASP2024187456

PATIENT
  Age: 74 Year
  Sex: Female

DRUGS (1)
  1. REPATHA [Suspect]
     Active Substance: EVOLOCUMAB
     Indication: Blood cholesterol increased
     Dosage: 140 MILLIGRAM, Q2WK
     Route: 065
     Dates: start: 20240510

REACTIONS (3)
  - Injection site pain [Unknown]
  - Accidental exposure to product [Unknown]
  - Device use error [Unknown]

NARRATIVE: CASE EVENT DATE: 20240908
